FAERS Safety Report 9914422 (Version 1)
Quarter: 2014Q1

REPORT INFORMATION
  Report Type: Spontaneous
  Country: US (occurrence: None)
  Receive Date: 20140219
  Receipt Date: 20140219
  Transmission Date: 20141002
  Serious: Yes (Other)
  Sender: FDA-Public Use
  Company Number: None

PATIENT
  Age: 85 Year
  Sex: Female
  Weight: 70.31 kg

DRUGS (2)
  1. PROLIA AMGEN [Suspect]
     Indication: OSTEOPENIA
     Dosage: APPLIED TO A SURFACE, USUALLY THE SKIN
     Dates: start: 20140113
  2. PROLIA AMGEN [Suspect]
     Indication: FRACTURE
     Dosage: APPLIED TO A SURFACE, USUALLY THE SKIN
     Dates: start: 20140113

REACTIONS (5)
  - Myalgia [None]
  - Bone pain [None]
  - Abasia [None]
  - Movement disorder [None]
  - Back pain [None]
